FAERS Safety Report 17809497 (Version 1)
Quarter: 2020Q2

REPORT INFORMATION
  Report Type: Spontaneous
  Country: AU (occurrence: AU)
  Receive Date: 20200521
  Receipt Date: 20200521
  Transmission Date: 20200714
  Serious: No
  Sender: FDA-Public Use
  Company Number: AU-TOLMAR, INC.-19AU000639

PATIENT
  Sex: Male

DRUGS (1)
  1. ELIGARD [Suspect]
     Active Substance: LEUPROLIDE ACETATE
     Indication: PRODUCT USED FOR UNKNOWN INDICATION
     Dosage: 45 MG, Q6MONTHS
     Route: 058

REACTIONS (3)
  - Intercepted product preparation error [Unknown]
  - Wrong technique in product usage process [Unknown]
  - Product leakage [Unknown]

NARRATIVE: CASE EVENT DATE: 20190826
